FAERS Safety Report 8297993-1 (Version None)
Quarter: 2012Q2

REPORT INFORMATION
  Report Type: 
  Country: None (occurrence: None)
  Receive Date: 20120419
  Receipt Date: 20120410
  Transmission Date: 20120825
  Serious: Yes (Hospitalization)
  Sender: FDA-Public Use
  Company Number: JP-VERTEX PHARMACEUTICALS INC.-AE-2012-004899

PATIENT
  Age: 67 Year
  Sex: Male

DRUGS (8)
  1. PEGINTERFERON [Concomitant]
     Indication: HEPATITIS C
     Route: 058
     Dates: start: 20120207, end: 20120214
  2. PEGINTERFERON [Concomitant]
     Route: 058
     Dates: start: 20120221, end: 20120321
  3. LENDORMIN [Concomitant]
     Indication: INSOMNIA
     Route: 048
  4. TELAVIC (TELAPREVIR) [Suspect]
     Indication: HEPATITIS C
     Route: 048
     Dates: start: 20120207
  5. XYZAL [Concomitant]
     Route: 048
     Dates: end: 20120219
  6. TELAVIC (TELAPREVIR) [Suspect]
     Route: 048
     Dates: start: 20120321, end: 20120328
  7. EBASTINE [Concomitant]
     Route: 048
     Dates: start: 20120220, end: 20120327
  8. RIBAVIRIN [Concomitant]
     Indication: HEPATITIS C
     Route: 048
     Dates: start: 20120207, end: 20120328

REACTIONS (2)
  - DRUG ERUPTION [None]
  - PYREXIA [None]
